FAERS Safety Report 8168562-9 (Version None)
Quarter: 2012Q1

REPORT INFORMATION
  Report Type: 
  Country: None (occurrence: None)
  Receive Date: 20120227
  Receipt Date: 20120227
  Transmission Date: 20120608
  Serious: No
  Sender: FDA-Public Use
  Company Number: None

PATIENT
  Age: 62 Year
  Sex: Female
  Weight: 88.904 kg

DRUGS (1)
  1. CYMBALTA [Suspect]
     Dosage: 60.0 MG
     Route: 048

REACTIONS (7)
  - DIZZINESS [None]
  - GAIT DISTURBANCE [None]
  - NAUSEA [None]
  - CHILLS [None]
  - DRUG WITHDRAWAL SYNDROME [None]
  - CRYING [None]
  - PAIN [None]
